FAERS Safety Report 17378447 (Version 2)
Quarter: 2020Q1

REPORT INFORMATION
  Report Type: Spontaneous
  Country: CZ (occurrence: CZ)
  Receive Date: 20200206
  Receipt Date: 20200226
  Transmission Date: 20200409
  Serious: Yes (Death, Life-Threatening, Hospitalization, Disabling, Other)
  Sender: FDA-Public Use
  Company Number: CZ-AMGEN-CZESP2020019501

PATIENT
  Age: 79 Year
  Sex: Female

DRUGS (7)
  1. ENBREL [Suspect]
     Active Substance: ETANERCEPT
     Indication: RHEUMATOID ARTHRITIS
     Dosage: 50 MILLIGRAM, QWK
     Route: 058
     Dates: start: 20180517, end: 20190410
  2. LOZAP [LOSARTAN POTASSIUM] [Concomitant]
     Dosage: 50 MILLIGRAM (1.5L IN THE EVENING)
  3. OMEPRAZOLE. [Concomitant]
     Active Substance: OMEPRAZOLE
     Dosage: 20 MILLIGRAM, QD (1X/DAYIN THE MORNING)
  4. VIGANTOL [COLECALCIFEROL] [Concomitant]
     Active Substance: CHOLECALCIFEROL
     Dosage: 30-20 GTT, WEEKLY
  5. STACYL [Concomitant]
     Dosage: 100 MILLIGRAM (ALTERNATE DAY)
  6. METYPRED [METHYLPREDNISOLONE] [Concomitant]
     Active Substance: METHYLPREDNISOLONE
     Dosage: 4 MILLIGRAM, QD (1X/DAY IN THE MORNING)
  7. LEFLUNOMID SANDOZ [Concomitant]
     Dosage: 20 MILLIGRAM, QD (1X/DAY IN THE MORNING)

REACTIONS (6)
  - Myocardial infarction [Recovered/Resolved with Sequelae]
  - Cerebrovascular accident [Recovered/Resolved with Sequelae]
  - Hepatic failure [Unknown]
  - Death [Fatal]
  - Deep vein thrombosis [Unknown]
  - Swelling [Unknown]

NARRATIVE: CASE EVENT DATE: 20190414
